FAERS Safety Report 14132107 (Version 12)
Quarter: 2022Q3

REPORT INFORMATION
  Report Type: Report from Study
  Country: JP (occurrence: JP)
  Receive Date: 20171027
  Receipt Date: 20220907
  Transmission Date: 20221027
  Serious: No
  Sender: FDA-Public Use
  Company Number: JP-ABBVIE-17K-087-1944842-00

PATIENT
  Age: 78 Year
  Sex: Female
  Weight: 41 kg

DRUGS (4)
  1. CARBIDOPA\LEVODOPA [Suspect]
     Active Substance: CARBIDOPA\LEVODOPA
     Indication: Parkinson^s disease
     Dosage: MD: 4.8 ML, CD: 2.8 ML/HR  16 HRS, ED: 1 ML/UNIT  0
     Route: 050
     Dates: start: 20170209
  2. CARBIDOPA\LEVODOPA [Suspect]
     Active Substance: CARBIDOPA\LEVODOPA
  3. CARBIDOPA\LEVODOPA [Suspect]
     Active Substance: CARBIDOPA\LEVODOPA
     Indication: Product used for unknown indication
     Dosage: PRN
     Route: 048
  4. CARBIDOPA\LEVODOPA [Concomitant]
     Active Substance: CARBIDOPA\LEVODOPA
     Indication: Product used for unknown indication
     Route: 048

REACTIONS (26)
  - Arthralgia [Not Recovered/Not Resolved]
  - Chest discomfort [Not Recovered/Not Resolved]
  - Joint range of motion decreased [Not Recovered/Not Resolved]
  - Device use issue [Unknown]
  - Chest discomfort [Unknown]
  - Dysstasia [Unknown]
  - Malaise [Unknown]
  - Gait disturbance [Not Recovered/Not Resolved]
  - Dyspnoea [Unknown]
  - Asthenia [Unknown]
  - Anxiety [Not Recovered/Not Resolved]
  - Parkinson^s disease [Unknown]
  - Hypokinesia [Not Recovered/Not Resolved]
  - Therapeutic product effect incomplete [Unknown]
  - Bradykinesia [Unknown]
  - Stoma site abscess [Unknown]
  - Stoma site discharge [Unknown]
  - Nasopharyngitis [Unknown]
  - Visual impairment [Unknown]
  - Weight decreased [Unknown]
  - Dizziness [Unknown]
  - Tremor [Unknown]
  - Device issue [Unknown]
  - On and off phenomenon [Not Recovered/Not Resolved]
  - Parkinson^s disease [Unknown]
  - Drug ineffective [Unknown]

NARRATIVE: CASE EVENT DATE: 20170101
